FAERS Safety Report 23266065 (Version 1)
Quarter: 2023Q4

REPORT INFORMATION
  Report Type: Report from Study
  Country: CN (occurrence: CN)
  Receive Date: 20231206
  Receipt Date: 20231206
  Transmission Date: 20240109
  Serious: Yes (Hospitalization, Other)
  Sender: FDA-Public Use
  Company Number: CN-GILEAD-2023-0652910

PATIENT
  Age: 0 Year
  Sex: Male
  Weight: 3.6 kg

DRUGS (8)
  1. TENOFOVIR ALAFENAMIDE [Suspect]
     Active Substance: TENOFOVIR ALAFENAMIDE
     Indication: Prophylaxis against HIV infection
     Dosage: 25 MG, QD
     Route: 064
  2. TENOFOVIR ALAFENAMIDE [Suspect]
     Active Substance: TENOFOVIR ALAFENAMIDE
     Indication: Hepatitis B
  3. HEPATITIS B VIRUS VACCINE [Concomitant]
     Active Substance: HEPATITIS B VIRUS VACCINE
  4. BCG VACCINE [Concomitant]
     Active Substance: BCG VACCINE
  5. AMOXICILLIN [Concomitant]
     Active Substance: AMOXICILLIN
  6. CLAVULANATE POTASSIUM [Concomitant]
     Active Substance: CLAVULANATE POTASSIUM
  7. AMBROXOL [Concomitant]
     Active Substance: AMBROXOL
  8. VITAMIN K1 [Concomitant]
     Active Substance: PHYTONADIONE

REACTIONS (7)
  - Neonatal pneumonia [Recovered/Resolved]
  - Brain injury [Recovered/Resolved]
  - Metabolic syndrome [Recovered/Resolved]
  - Hyperlactacidaemia [Recovered/Resolved]
  - Jaundice neonatal [Recovered/Resolved]
  - Anaemia [Recovered/Resolved]
  - Foetal exposure during pregnancy [Recovered/Resolved]

NARRATIVE: CASE EVENT DATE: 20221122
